FAERS Safety Report 5115707-0 (Version None)
Quarter: 2006Q3

REPORT INFORMATION
  Report Type: 
  Country: None (occurrence: None)
  Receive Date: 20060927
  Receipt Date: 20060328
  Transmission Date: 20061208
  Serious: No
  Sender: FDA-Public Use
  Company Number: US-GLAXOSMITHKLINE-A0599350A

PATIENT

DRUGS (2)
  1. FORTAZ [Suspect]
     Indication: DRUG USE FOR UNKNOWN INDICATION
     Route: 042
  2. NO CONCURRENT MEDICATION [Concomitant]

REACTIONS (2)
  - OVERDOSE [None]
  - RASH [None]
